FAERS Safety Report 18445505 (Version 1)
Quarter: 2020Q4

REPORT INFORMATION
  Report Type: Spontaneous
  Country: US (occurrence: US)
  Receive Date: 20201029
  Receipt Date: 20201029
  Transmission Date: 20210114
  Serious: Yes (Other)
  Sender: FDA-Public Use
  Company Number: None

PATIENT
  Sex: Female

DRUGS (2)
  1. ELIQUIS [Suspect]
     Active Substance: APIXABAN
  2. XARELTO [Suspect]
     Active Substance: RIVAROXABAN

REACTIONS (3)
  - Nausea [None]
  - Hypersensitivity [None]
  - Pruritus [None]
